FAERS Safety Report 5309057-7 (Version None)
Quarter: 2007Q2

REPORT INFORMATION
  Report Type: 
  Country: None (occurrence: None)
  Receive Date: 20070420
  Receipt Date: 20070410
  Transmission Date: 20071010
  Serious: Yes (Hospitalization)
  Sender: FDA-Public Use
  Company Number: 2007-01818

PATIENT
  Age: 70 Year
  Sex: Female

DRUGS (1)
  1. MONODOX [Suspect]
     Indication: UPPER RESPIRATORY TRACT INFECTION BACTERIAL
     Dosage: 200 MG, SINGLE, ORAL
     Route: 048

REACTIONS (2)
  - AMNESIA [None]
  - HEADACHE [None]
